FAERS Safety Report 18799479 (Version 2)
Quarter: 2025Q2

REPORT INFORMATION
  Report Type: Spontaneous
  Country: US (occurrence: US)
  Receive Date: 20210128
  Receipt Date: 20250529
  Transmission Date: 20250716
  Serious: No
  Sender: CIPLA
  Company Number: US-CIPLA LTD.-2020US09361

PATIENT

DRUGS (3)
  1. ALBUTEROL [Suspect]
     Active Substance: ALBUTEROL
     Indication: Chronic obstructive pulmonary disease
     Dates: start: 202011
  2. ALBUTEROL [Suspect]
     Active Substance: ALBUTEROL
     Dates: start: 202011
  3. ALBUTEROL [Suspect]
     Active Substance: ALBUTEROL
     Dates: start: 2020

REACTIONS (3)
  - Dyspnoea [Unknown]
  - Device defective [Unknown]
  - Device delivery system issue [Unknown]

NARRATIVE: CASE EVENT DATE: 20201101
